FAERS Safety Report 8495381-6 (Version None)
Quarter: 2012Q2

REPORT INFORMATION
  Report Type: 
  Country: None (occurrence: None)
  Receive Date: 20120403
  Receipt Date: 20110714
  Transmission Date: 20120825
  Serious: Yes (Other)
  Sender: FDA-Public Use
  Company Number: 0711-70

PATIENT
  Sex: Female

DRUGS (3)
  1. CLOBEX [Concomitant]
  2. BENEFIT COSMETICS [Concomitant]
  3. FLUOCINOLONE ACETONIDE [Suspect]
     Indication: PSORIASIS
     Dosage: TOPICAL
     Route: 061

REACTIONS (3)
  - EYE SWELLING [None]
  - EUPHORIC MOOD [None]
  - FEELING ABNORMAL [None]
